FAERS Safety Report 13317871 (Version 1)
Quarter: 2017Q1

REPORT INFORMATION
  Report Type: Spontaneous
  Country: US (occurrence: US)
  Receive Date: 20170309
  Receipt Date: 20170309
  Transmission Date: 20170428
  Serious: No
  Sender: FDA-Public Use
  Company Number: None

PATIENT
  Age: 72 Year
  Sex: Female
  Weight: 73.35 kg

DRUGS (1)
  1. PENTAM [Suspect]
     Active Substance: PENTAMIDINE ISETHIONATE
     Indication: LYMPHOMA
     Dosage: ?          OTHER FREQUENCY:MONTHLY;?
     Route: 055
     Dates: start: 20170309

REACTIONS (3)
  - Dysphagia [None]
  - Dysphonia [None]
  - Throat irritation [None]

NARRATIVE: CASE EVENT DATE: 20170309
